FAERS Safety Report 18973112 (Version 1)
Quarter: 2021Q1

REPORT INFORMATION
  Report Type: Spontaneous
  Country: US (occurrence: US)
  Receive Date: 20210305
  Receipt Date: 20210305
  Transmission Date: 20210420
  Serious: No
  Sender: FDA-Public Use
  Company Number: US-GLAXOSMITHKLINE-US2021055891

PATIENT
  Age: 52 Year
  Sex: Male

DRUGS (1)
  1. TRELEGY ELLIPTA [Suspect]
     Active Substance: FLUTICASONE FUROATE\UMECLIDINIUM BROMIDE\VILANTEROL TRIFENATATE
     Indication: DYSPNOEA
     Dosage: 1 PUFF(S), 1D, (100/62.5/25MCG)
     Route: 055
     Dates: start: 20210218

REACTIONS (3)
  - Dyspepsia [Unknown]
  - Insomnia [Unknown]
  - Product use in unapproved indication [Unknown]
